FAERS Safety Report 8396951 (Version 2)
Quarter: 2012Q4

REPORT INFORMATION
  Report Type: 
  Country: US (occurrence: US)
  Receive Date: 20120209
  Receipt Date: 20121024
  Transmission Date: 20130627
  Serious: No
  Sender: FDA-Public Use
  Company Number: US-PFIZER INC-2012030588

PATIENT
  Age: 52 Year
  Sex: Female
  Weight: 67.57 kg

DRUGS (1)
  1. LEVOXYL [Suspect]
     Indication: AUTOIMMUNE THYROIDITIS
     Dosage: 150 ug (three tablets of 50 ug ),daily
     Route: 048
     Dates: start: 2003

REACTIONS (20)
  - Product quality issue [Unknown]
  - Thyroid function test abnormal [Unknown]
  - Drug ineffective [Unknown]
  - Reaction to drug excipients [Unknown]
  - Feeling abnormal [Unknown]
  - Muscular weakness [Unknown]
  - Feeling cold [Unknown]
  - Myalgia [Unknown]
  - Dysphonia [Unknown]
  - Alopecia [Unknown]
  - Rash [Unknown]
  - Pruritus [Unknown]
  - Dry skin [Unknown]
  - Abdominal distension [Unknown]
  - Swelling face [Unknown]
  - Joint swelling [Unknown]
  - Oedema peripheral [Unknown]
  - Movement disorder [Unknown]
  - Malaise [Unknown]
  - Weight increased [Unknown]
